FAERS Safety Report 4872967-9 (Version None)
Quarter: 2006Q1

REPORT INFORMATION
  Report Type: 
  Country: None (occurrence: None)
  Receive Date: 20060105
  Receipt Date: 20050519
  Transmission Date: 20060701
  Serious: Yes (Other)
  Sender: FDA-Public Use
  Company Number: US-BRISTOL-MYERS SQUIBB COMPANY-12979605

PATIENT
  Age: 33 Year
  Sex: Female

DRUGS (5)
  1. SERZONE [Suspect]
     Indication: DEPRESSION
     Route: 048
     Dates: start: 20000101
  2. ALLEGRA [Concomitant]
  3. WELLBUTRIN SR [Concomitant]
  4. ZOLOFT [Concomitant]
  5. TRIPHASIL-28 [Concomitant]

REACTIONS (1)
  - BILIARY CIRRHOSIS [None]
